FAERS Safety Report 13381045 (Version 1)
Quarter: 2017Q1

REPORT INFORMATION
  Report Type: Spontaneous
  Country: US (occurrence: US)
  Receive Date: 20170329
  Receipt Date: 20170329
  Transmission Date: 20170429
  Serious: No
  Sender: FDA-Public Use
  Company Number: US-PFIZER INC-2017129292

PATIENT
  Age: 74 Year
  Sex: Female
  Weight: 82 kg

DRUGS (2)
  1. EUCRISA [Suspect]
     Active Substance: CRISABOROLE
     Indication: DERMATITIS CONTACT
     Dosage: 2X/DAY; 2.5/0.5G APPLY TWICE DAILY TO THE AFFECTED AREAS, TO HER FACE
     Route: 061
  2. EUCRISA [Suspect]
     Active Substance: CRISABOROLE
     Indication: EYELID MARGIN CRUSTING

REACTIONS (2)
  - Product use issue [Unknown]
  - Burning sensation [Unknown]

NARRATIVE: CASE EVENT DATE: 20170322
